FAERS Safety Report 9836524 (Version 1)
Quarter: 2014Q1

REPORT INFORMATION
  Report Type: Report from Study
  Country: GB (occurrence: CF)
  Receive Date: 20140123
  Receipt Date: 20140123
  Transmission Date: 20141002
  Serious: Yes (Other)
  Sender: FDA-Public Use
  Company Number: GB-ROCHE-1334691

PATIENT
  Sex: Female

DRUGS (6)
  1. DIAZEPAM [Suspect]
     Indication: SEDATION
     Route: 042
  2. DIAZEPAM [Suspect]
     Route: 042
  3. DIHYDRALAZINE SULFATE [Suspect]
     Indication: HYPERTENSION
     Route: 042
  4. DIHYDRALAZINE SULFATE [Suspect]
     Dosage: 6.25- 12.50 MG
     Route: 042
  5. FUROSEMIDE [Suspect]
     Indication: DIURETIC THERAPY
     Route: 042
  6. PETHIDINE HYDROCHLORIDE [Suspect]
     Indication: ANALGESIC THERAPY
     Route: 030

REACTIONS (2)
  - Death neonatal [Unknown]
  - Maternal exposure during pregnancy [Unknown]
